FAERS Safety Report 14859187 (Version 1)
Quarter: 2018Q2

REPORT INFORMATION
  Report Type: Spontaneous
  Country: US (occurrence: US)
  Receive Date: 20180508
  Receipt Date: 20180508
  Transmission Date: 20180711
  Serious: No
  Sender: FDA-Public Use
  Company Number: US-ALLERGAN-1767515US

PATIENT
  Sex: Female

DRUGS (1)
  1. MICROGESTIN 24 FE [Suspect]
     Active Substance: ETHINYL ESTRADIOL\NORETHINDRONE ACETATE
     Indication: PRODUCT USED FOR UNKNOWN INDICATION
     Dosage: 1 MG, UNK
     Route: 065
     Dates: start: 20171112

REACTIONS (3)
  - Nausea [Unknown]
  - Influenza like illness [Unknown]
  - Vomiting [Unknown]

NARRATIVE: CASE EVENT DATE: 20171112
